FAERS Safety Report 16763780 (Version 1)
Quarter: 2019Q3

REPORT INFORMATION
  Report Type: Spontaneous
  Country: US (occurrence: US)
  Receive Date: 20190902
  Receipt Date: 20190902
  Transmission Date: 20191005
  Serious: Yes (Other)
  Sender: FDA-Public Use
  Company Number: PHHY2019US201037

PATIENT
  Age: 42 Year
  Sex: Female

DRUGS (9)
  1. COBICISTAT [Interacting]
     Active Substance: COBICISTAT
     Indication: HIV INFECTION
     Dosage: 150 MG, UNK
     Route: 065
     Dates: start: 201703
  2. ATOVAQUONE. [Concomitant]
     Active Substance: ATOVAQUONE
     Indication: ANTIFUNGAL PROPHYLAXIS
  3. ATOVAQUONE. [Concomitant]
     Active Substance: ATOVAQUONE
     Indication: TOXOPLASMOSIS
     Dosage: 1500 MG, BID
     Route: 048
  4. TENOFOVIR ALAFENAMIDE [Interacting]
     Active Substance: TENOFOVIR ALAFENAMIDE
     Indication: HIV INFECTION
     Dosage: 10 MG, UNK
     Route: 065
     Dates: start: 201703
  5. ELVITEGRAVIR [Interacting]
     Active Substance: ELVITEGRAVIR
     Indication: HIV INFECTION
     Dosage: 150 MG, UNK
     Route: 065
     Dates: start: 201703
  6. EMTRICITABINE [Interacting]
     Active Substance: EMTRICITABINE
     Indication: HIV INFECTION
     Dosage: 200 MG, UNK
     Route: 065
     Dates: start: 201703
  7. CALCIUM CARBONATE. [Suspect]
     Active Substance: CALCIUM CARBONATE
     Indication: MINERAL SUPPLEMENTATION
     Dosage: 1500 MG, UNK
     Route: 048
     Dates: start: 201705
  8. CLINDAMYCIN. [Concomitant]
     Active Substance: CLINDAMYCIN
     Indication: TOXOPLASMOSIS
     Dosage: 600 MG, UNK
     Route: 042
  9. FLUOXETINE [Concomitant]
     Active Substance: FLUOXETINE HYDROCHLORIDE
     Indication: DEPRESSION
     Dosage: UNK
     Route: 065
     Dates: start: 201703

REACTIONS (2)
  - Drug interaction [Unknown]
  - HIV infection [Recovering/Resolving]

NARRATIVE: CASE EVENT DATE: 201707
